FAERS Safety Report 9459409 (Version 2)
Quarter: 2014Q1

REPORT INFORMATION
  Report Type: Report from Study
  Country: JP (occurrence: JP)
  Receive Date: 20130815
  Receipt Date: 20140312
  Transmission Date: 20141002
  Serious: Yes (Death)
  Sender: FDA-Public Use
  Company Number: JP-ROCHE-1259997

PATIENT
  Age: 86 Year
  Sex: Male

DRUGS (6)
  1. METHOXY POLYETHYLENE GLYCOL-EPOETIN BETA [Suspect]
     Indication: NEPHROGENIC ANAEMIA
     Route: 042
     Dates: start: 20121101, end: 20121220
  2. TANATRIL [Concomitant]
     Route: 048
     Dates: end: 20130116
  3. PLETAAL [Concomitant]
     Route: 048
     Dates: end: 20130116
  4. LUPRAC [Concomitant]
     Route: 048
     Dates: end: 20130116
  5. MEMANTINE HYDROCHLORIDE [Concomitant]
     Route: 048
     Dates: end: 20130116
  6. RIVASTACH [Concomitant]
     Route: 062
     Dates: end: 20130116

REACTIONS (1)
  - Cardiac failure [Fatal]
